FAERS Safety Report 10094299 (Version 1)
Quarter: 2014Q2

REPORT INFORMATION
  Report Type: Spontaneous
  Country: GB (occurrence: GB)
  Receive Date: 20140422
  Receipt Date: 20140422
  Transmission Date: 20141212
  Serious: Yes (Life-Threatening, Hospitalization, Other)
  Sender: FDA-Public Use
  Company Number: GB-TEVA-475201ISR

PATIENT
  Age: 30 Year
  Sex: Female
  Weight: 60 kg

DRUGS (1)
  1. SERTRALINE [Suspect]

REACTIONS (4)
  - Borderline personality disorder [Recovered/Resolved]
  - Mania [Recovered/Resolved]
  - Mania [Recovered/Resolved]
  - Intentional overdose [Recovered/Resolved]
